FAERS Safety Report 16417277 (Version 2)
Quarter: 2019Q2

REPORT INFORMATION
  Report Type: Spontaneous
  Country: ES (occurrence: ES)
  Receive Date: 20190611
  Receipt Date: 20190621
  Transmission Date: 20190711
  Serious: Yes (Other)
  Sender: FDA-Public Use
  Company Number: ES-SA-2019SA152871

PATIENT
  Age: 77 Year
  Sex: Male
  Weight: 92.5 kg

DRUGS (7)
  1. TRULICITY [Interacting]
     Active Substance: DULAGLUTIDE
     Indication: OBESITY
  2. AMARYL [Suspect]
     Active Substance: GLIMEPIRIDE
     Indication: DIABETES MELLITUS
     Dosage: 2 MG, QD (0-1-0)
     Route: 048
     Dates: start: 20051130
  3. METFORMIN HYDROCHLORIDE. [Interacting]
     Active Substance: METFORMIN HYDROCHLORIDE
     Indication: DIABETES MELLITUS
     Dosage: 850 MG, BID (1-0-1)
     Route: 048
     Dates: start: 20180404
  4. TRULICITY [Interacting]
     Active Substance: DULAGLUTIDE
     Indication: DIABETES MELLITUS INADEQUATE CONTROL
     Dosage: 1.5 MG, QW
     Route: 058
     Dates: start: 20181130, end: 20190218
  5. INDAPAMIDE. [Interacting]
     Active Substance: INDAPAMIDE
     Indication: HYPERTENSION
     Dosage: 2.5 MG, QD (1-0-0)
     Route: 048
     Dates: start: 200609
  6. TRAJENTA [Interacting]
     Active Substance: LINAGLIPTIN
     Indication: DIABETES MELLITUS
     Dosage: 5 MG, QD (1-0-0)
     Route: 048
     Dates: start: 20180316
  7. ENALAPRIL MALEATE. [Interacting]
     Active Substance: ENALAPRIL MALEATE
     Indication: HYPERTENSION
     Dosage: 5 MG, QD (WITH BREAKFAST)
     Route: 048
     Dates: start: 20181130

REACTIONS (6)
  - Drug interaction [Unknown]
  - Diarrhoea [Recovered/Resolved]
  - Vomiting [Recovered/Resolved]
  - Nausea [Recovered/Resolved]
  - Pancreatitis [Recovered/Resolved]
  - Abdominal pain [Recovered/Resolved]

NARRATIVE: CASE EVENT DATE: 201902
